FAERS Safety Report 25572202 (Version 2)
Quarter: 2025Q3

REPORT INFORMATION
  Report Type: Spontaneous
  Country: US (occurrence: US)
  Receive Date: 20250717
  Receipt Date: 20250723
  Transmission Date: 20251020
  Serious: Yes (Hospitalization, Other)
  Sender: TORRENT PHARMA INC.
  Company Number: US-TORRENT-00014415

PATIENT
  Age: 70 Year
  Sex: Male

DRUGS (1)
  1. ACYCLOVIR [Suspect]
     Active Substance: ACYCLOVIR
     Indication: Disseminated varicella zoster virus infection
     Dosage: IV ACYCLOVIR (10 MG/KG/8H FOR 14 DAYS)
     Route: 042

REACTIONS (2)
  - Condition aggravated [Recovered/Resolved]
  - Inappropriate antidiuretic hormone secretion [Recovered/Resolved]
